FAERS Safety Report 9018553 (Version 1)
Quarter: 2013Q1

REPORT INFORMATION
  Report Type: Spontaneous
  Country: US (occurrence: None)
  Receive Date: 20130111
  Receipt Date: 20130111
  Transmission Date: 20140127
  Serious: No
  Sender: FDA-Public Use
  Company Number: None

PATIENT
  Age: 55 Year
  Sex: Female

DRUGS (1)
  1. INTERFERON (UNSPECIFIED) [Suspect]
     Dates: start: 20100707, end: 20100719

REACTIONS (2)
  - Cholestasis [None]
  - Drug-induced liver injury [None]
